FAERS Safety Report 5578040-9 (Version None)
Quarter: 2007Q4

REPORT INFORMATION
  Report Type: 
  Country: None (occurrence: None)
  Receive Date: 20071231
  Receipt Date: 20071226
  Transmission Date: 20080405
  Serious: Yes (Death, Hospitalization)
  Sender: FDA-Public Use
  Company Number: FR-AVENTIS-200714140FR

PATIENT
  Age: 78 Year
  Sex: Female

DRUGS (10)
  1. TARGOCID [Suspect]
     Route: 058
     Dates: start: 20070922, end: 20071001
  2. TARGOCID [Suspect]
     Route: 058
     Dates: start: 20071010
  3. TARGOCID [Suspect]
     Route: 058
     Dates: start: 20070922, end: 20071001
  4. TARGOCID [Suspect]
     Route: 058
     Dates: start: 20071010
  5. RIFAMPICIN [Suspect]
     Route: 048
     Dates: start: 20070922
  6. RIFAMPICIN [Suspect]
     Route: 048
     Dates: start: 20070922
  7. GENTAMICIN [Concomitant]
     Dates: start: 20070919, end: 20070921
  8. GENTAMICIN [Concomitant]
     Dates: start: 20070919, end: 20070921
  9. VANCOMYCIN [Concomitant]
     Dates: start: 20070919, end: 20070921
  10. VANCOMYCIN [Concomitant]
     Dates: start: 20070919, end: 20070921

REACTIONS (4)
  - BLOOD ALKALINE PHOSPHATASE INCREASED [None]
  - CARDIAC ARREST [None]
  - DRUG ADMINISTRATION ERROR [None]
  - GAMMA-GLUTAMYLTRANSFERASE INCREASED [None]
